FAERS Safety Report 13075815 (Version 1)
Quarter: 2016Q4

REPORT INFORMATION
  Report Type: Spontaneous
  Country: US (occurrence: US)
  Receive Date: 20161229
  Receipt Date: 20161229
  Transmission Date: 20170207
  Serious: Yes (Other)
  Sender: FDA-Public Use
  Company Number: None

PATIENT
  Age: 49 Year
  Sex: Male
  Weight: 88.2 kg

DRUGS (1)
  1. TALTZ [Suspect]
     Active Substance: IXEKIZUMAB
     Indication: PSORIASIS
     Dosage: ?          OTHER FREQUENCY:AS DIRECTED;?
     Route: 058
     Dates: start: 20161207

REACTIONS (3)
  - Pneumonia [None]
  - Dizziness [None]
  - Bronchitis [None]

NARRATIVE: CASE EVENT DATE: 20161229
